FAERS Safety Report 8068014-0 (Version None)
Quarter: 2012Q1

REPORT INFORMATION
  Report Type: 
  Country: None (occurrence: None)
  Receive Date: 20120124
  Receipt Date: 20110908
  Transmission Date: 20120608
  Serious: No
  Sender: FDA-Public Use
  Company Number: US-AMGEN-USASP2011046054

PATIENT
  Sex: Female

DRUGS (4)
  1. CALCIUM [Concomitant]
  2. XGEVA [Suspect]
     Indication: METASTASES TO BONE
     Dosage: 120 MG, Q4WK
     Dates: start: 20110114
  3. LETROZOLE [Concomitant]
  4. LISINOPRIL [Concomitant]

REACTIONS (2)
  - NEUROPATHY PERIPHERAL [None]
  - BURNING SENSATION [None]
